FAERS Safety Report 14897161 (Version 1)
Quarter: 2018Q2

REPORT INFORMATION
  Report Type: Spontaneous
  Country: US (occurrence: US)
  Receive Date: 20180515
  Receipt Date: 20180515
  Transmission Date: 20180711
  Serious: Yes (Hospitalization)
  Sender: FDA-Public Use
  Company Number: US-PURACAP PHARMACEUTICAL LLC-2018EPC00252

PATIENT
  Age: 28 Year
  Sex: Female

DRUGS (2)
  1. IBUPROFEN. [Suspect]
     Active Substance: IBUPROFEN
     Dosage: 500 TABS
     Route: 048
  2. SLEEP PM [Suspect]
     Active Substance: UNSPECIFIED INGREDIENT
     Dosage: 120 TABS
     Route: 048

REACTIONS (7)
  - Depressed level of consciousness [Unknown]
  - Electrocardiogram QRS complex prolonged [Unknown]
  - Electrocardiogram QT prolonged [Unknown]
  - Lactic acidosis [Unknown]
  - Sinus tachycardia [Unknown]
  - Intentional overdose [Unknown]
  - Suicide attempt [Unknown]
